FAERS Safety Report 23092774 (Version 2)
Quarter: 2023Q4

REPORT INFORMATION
  Report Type: Spontaneous
  Country: MX (occurrence: MX)
  Receive Date: 20231021
  Receipt Date: 20231109
  Transmission Date: 20240110
  Serious: No
  Sender: FDA-Public Use
  Company Number: MX-MLMSERVICE-20231004-4583811-1

PATIENT
  Age: 4 Decade
  Sex: Male

DRUGS (10)
  1. DOCETAXEL [Suspect]
     Active Substance: DOCETAXEL\DOCETAXEL ANHYDROUS
     Indication: Cardiac neoplasm malignant
     Dosage: TWO CONSECUTIVE DAYS EVERY 2WEEKS
  2. GEMCITABINE [Suspect]
     Active Substance: GEMCITABINE
     Indication: Cardiac neoplasm malignant
     Dosage: TWO CONSECUTIVE DAYS EVERY 2WEEKS
  3. BEVACIZUMAB [Suspect]
     Active Substance: BEVACIZUMAB
     Indication: Angiosarcoma metastatic
     Dosage: TWO CONSECUTIVE DAYS EVERY 2WEEKS
  4. ESOMEPRAZOLE [Concomitant]
     Active Substance: ESOMEPRAZOLE
  5. VALPROATE MAGNESIUM [Concomitant]
     Active Substance: VALPROATE MAGNESIUM
     Indication: Generalised tonic-clonic seizure
  6. LEVETIRACETAM [Concomitant]
     Active Substance: LEVETIRACETAM
     Indication: Generalised tonic-clonic seizure
  7. PHENYTOIN [Concomitant]
     Active Substance: PHENYTOIN
     Indication: Generalised tonic-clonic seizure
  8. BEVACIZUMAB [Suspect]
     Active Substance: BEVACIZUMAB
     Indication: Cardiac neoplasm malignant
     Dosage: TWO CONSECUTIVE DAYS EVERY 2WEEKS
  9. GEMCITABINE [Suspect]
     Active Substance: GEMCITABINE
     Indication: Angiosarcoma metastatic
     Dosage: TWO CONSECUTIVE DAYS EVERY 2WEEKS
  10. DOCETAXEL [Suspect]
     Active Substance: DOCETAXEL\DOCETAXEL ANHYDROUS
     Indication: Angiosarcoma metastatic
     Dosage: TWO CONSECUTIVE DAYS EVERY 2WEEKS

REACTIONS (7)
  - Taste disorder [Not Recovered/Not Resolved]
  - Pain [Not Recovered/Not Resolved]
  - Diarrhoea [Recovered/Resolved]
  - Off label use [Unknown]
  - Nausea [Not Recovered/Not Resolved]
  - Headache [Unknown]
  - Fatigue [Unknown]
